FAERS Safety Report 22987691 (Version 2)
Quarter: 2024Q1

REPORT INFORMATION
  Report Type: Spontaneous
  Country: US (occurrence: US)
  Receive Date: 20230926
  Receipt Date: 20240328
  Transmission Date: 20240410
  Serious: No
  Sender: FDA-Public Use
  Company Number: US-SA-SAC20230925000206

PATIENT
  Age: 55 Year
  Sex: Male
  Weight: 81.64 kg

DRUGS (30)
  1. DUPIXENT [Suspect]
     Active Substance: DUPILUMAB
     Indication: Asthma
     Dosage: 300 MG, QOW
     Route: 058
     Dates: start: 202010
  2. PRED FORTE [Concomitant]
     Active Substance: PREDNISOLONE ACETATE
  3. PRED FORTE [Concomitant]
     Active Substance: PREDNISOLONE ACETATE
  4. VITAMIN D3 [Concomitant]
     Active Substance: CHOLECALCIFEROL
  5. VITAMIN D3 [Concomitant]
     Active Substance: CHOLECALCIFEROL
  6. FLUOXETINE HYDROCHLORIDE [Concomitant]
     Active Substance: FLUOXETINE HYDROCHLORIDE
  7. FLUOXETINE HYDROCHLORIDE [Concomitant]
     Active Substance: FLUOXETINE HYDROCHLORIDE
  8. HUMULIN R [Concomitant]
     Active Substance: INSULIN HUMAN
  9. HUMULIN R [Concomitant]
     Active Substance: INSULIN HUMAN
  10. HUMULIN N [Concomitant]
     Active Substance: INSULIN HUMAN
  11. HUMULIN N [Concomitant]
     Active Substance: INSULIN HUMAN
  12. HUMALOG [Concomitant]
     Active Substance: INSULIN LISPRO
  13. HUMALOG [Concomitant]
     Active Substance: INSULIN LISPRO
  14. LORATADINE [Concomitant]
     Active Substance: LORATADINE
  15. LORATADINE [Concomitant]
     Active Substance: LORATADINE
  16. TRULICITY [Concomitant]
     Active Substance: DULAGLUTIDE
  17. TRULICITY [Concomitant]
     Active Substance: DULAGLUTIDE
  18. ATORVASTATIN CALCIUM [Concomitant]
     Active Substance: ATORVASTATIN CALCIUM
  19. ATORVASTATIN CALCIUM [Concomitant]
     Active Substance: ATORVASTATIN CALCIUM
  20. AMLODIPINE BESYLATE [Concomitant]
     Active Substance: AMLODIPINE BESYLATE
  21. AMLODIPINE BESYLATE [Concomitant]
     Active Substance: AMLODIPINE BESYLATE
  22. ALBUTEROL SULFATE [Concomitant]
     Active Substance: ALBUTEROL SULFATE
  23. ALBUTEROL SULFATE [Concomitant]
     Active Substance: ALBUTEROL SULFATE
  24. ASPIRIN [Concomitant]
     Active Substance: ASPIRIN
  25. METFORMIN HYDROCHLORIDE [Concomitant]
     Active Substance: METFORMIN HYDROCHLORIDE
  26. METFORMIN HYDROCHLORIDE [Concomitant]
     Active Substance: METFORMIN HYDROCHLORIDE
  27. LISINOPRIL [Concomitant]
     Active Substance: LISINOPRIL
  28. LISINOPRIL [Concomitant]
     Active Substance: LISINOPRIL
  29. PANTOPRAZOLE SODIUM [Concomitant]
     Active Substance: PANTOPRAZOLE SODIUM
  30. ALBUTEROL SULFATE [Concomitant]
     Active Substance: ALBUTEROL SULFATE

REACTIONS (2)
  - Depression [Unknown]
  - Product dose omission in error [Unknown]

NARRATIVE: CASE EVENT DATE: 20230909
